FAERS Safety Report 25082819 (Version 3)
Quarter: 2025Q2

REPORT INFORMATION
  Report Type: Spontaneous
  Country: JP (occurrence: JP)
  Receive Date: 20250317
  Receipt Date: 20250422
  Transmission Date: 20250717
  Serious: Yes (Death, Other)
  Sender: ALEXION PHARMACEUTICALS
  Company Number: JP-AstraZeneca-CH-00826626A

PATIENT
  Age: 71 Year

DRUGS (16)
  1. ULTOMIRIS [Suspect]
     Active Substance: RAVULIZUMAB-CWVZ
     Indication: Atypical haemolytic uraemic syndrome
     Dosage: 2400 MILLIGRAM, Q8W
  2. NIFEDIPINE [Suspect]
     Active Substance: NIFEDIPINE
     Dosage: 4 DOSAGE FORM, BID
     Route: 065
  3. CARVEDILOL [Suspect]
     Active Substance: CARVEDILOL
     Dosage: 1 DOSAGE FORM, QD
     Route: 065
  4. DAYVIGO [Suspect]
     Active Substance: LEMBOREXANT
     Indication: Insomnia
     Dosage: 1 DOSAGE FORM (AS NEEDED), QD
     Route: 065
  5. SULFAMETHOXAZOLE\TRIMETHOPRIM [Suspect]
     Active Substance: SULFAMETHOXAZOLE\TRIMETHOPRIM
     Dosage: 0.5 DOSAGE FORM, QD
     Route: 065
  6. LANSOPRAZOLE [Suspect]
     Active Substance: LANSOPRAZOLE
     Dosage: 1 DOSAGE FORM, QD
     Route: 065
  7. METHYLPREDNISOLONE [Suspect]
     Active Substance: METHYLPREDNISOLONE
     Route: 065
  8. PREDONINE [Suspect]
     Active Substance: PREDNISOLONE
  9. PREDONINE [Suspect]
     Active Substance: PREDNISOLONE
  10. PREDONINE [Suspect]
     Active Substance: PREDNISOLONE
  11. PREDONINE [Suspect]
     Active Substance: PREDNISOLONE
  12. PREDONINE [Suspect]
     Active Substance: PREDNISOLONE
  13. PREDONINE [Suspect]
     Active Substance: PREDNISOLONE
  14. PREDONINE [Suspect]
     Active Substance: PREDNISOLONE
  15. PREDONINE [Suspect]
     Active Substance: PREDNISOLONE
     Route: 065
  16. LAGEVRIO [Suspect]
     Active Substance: MOLNUPIRAVIR
     Dosage: 8 DOSAGE FORM, BID
     Route: 065

REACTIONS (1)
  - Aortic dissection [Fatal]
